FAERS Safety Report 9425540 (Version 1)
Quarter: 2013Q3

REPORT INFORMATION
  Report Type: Spontaneous
  Country: US (occurrence: US)
  Receive Date: 20130729
  Receipt Date: 20130729
  Transmission Date: 20140515
  Serious: No
  Sender: FDA-Public Use
  Company Number: US-MYLANLABS-2012S1019513

PATIENT
  Sex: Female

DRUGS (2)
  1. LEVOTHYROXINE SODIUM TABLETS, USP [Suspect]
     Indication: HYPOTHYROIDISM
     Dosage: 75UG/QD MONDAY THROUGH FRIDAY AND 88 UG/QD SATURDAY AND SUNDAY AND NEXT WEEK REVERSED.
     Route: 048
  2. LEVOTHYROXINE [Concomitant]
     Indication: HYPOTHYROIDISM
     Dosage: ON SATURDAY AND SUNDAY
     Route: 048

REACTIONS (1)
  - Pain in extremity [Not Recovered/Not Resolved]
